FAERS Safety Report 11112211 (Version 1)
Quarter: 2015Q2

REPORT INFORMATION
  Report Type: Spontaneous
  Country: US (occurrence: None)
  Receive Date: 20150513
  Receipt Date: 20150513
  Transmission Date: 20150821
  Serious: No
  Sender: FDA-Public Use
  Company Number: None

PATIENT
  Age: 67 Year
  Sex: Male

DRUGS (3)
  1. PREDNISON [Suspect]
     Active Substance: PREDNISONE
     Route: 048
  2. ALFUROSIN [Concomitant]
  3. ZYTIGA [Suspect]
     Active Substance: ABIRATERONE ACETATE
     Indication: PROSTATE CANCER
     Route: 048
     Dates: start: 20140930

REACTIONS (2)
  - Hyperglycaemia [None]
  - Pollakiuria [None]

NARRATIVE: CASE EVENT DATE: 201501
